FAERS Safety Report 10088297 (Version 1)
Quarter: 2014Q2

REPORT INFORMATION
  Report Type: Spontaneous
  Country: FR (occurrence: FR)
  Receive Date: 20140421
  Receipt Date: 20140421
  Transmission Date: 20141212
  Serious: Yes (Other)
  Sender: FDA-Public Use
  Company Number: FR-BRISTOL-MYERS SQUIBB COMPANY-20623880

PATIENT
  Age: 23 Year
  Sex: Male

DRUGS (14)
  1. ABILIFY [Suspect]
     Route: 048
     Dates: end: 20140124
  2. TIAPRIDAL [Suspect]
     Dosage: NO.OF DOSAGE:2.5/D
     Route: 048
     Dates: end: 20131017
  3. PALIPERIDONE [Suspect]
     Dosage: XEPLION
     Dates: start: 20130930, end: 20131114
  4. RISPERDAL [Suspect]
     Route: 048
     Dates: end: 20131130
  5. DIPIPERON [Suspect]
     Route: 048
     Dates: start: 20131017, end: 20131023
  6. TERCIAN [Suspect]
     Route: 048
     Dates: end: 20140124
  7. ALPRAZOLAM [Concomitant]
     Route: 048
     Dates: start: 20131017, end: 20131114
  8. FLUARIX [Concomitant]
     Indication: INFLUENZA
     Route: 030
     Dates: start: 20131119
  9. NICOPATCH [Concomitant]
     Route: 062
     Dates: start: 20130130
  10. TRANXENE [Concomitant]
     Route: 048
     Dates: start: 20130717
  11. CARDENSIEL [Concomitant]
     Route: 048
     Dates: start: 20130930
  12. LOXAPAC [Concomitant]
     Dosage: NO.OF DOSAGE:3/D THEN 2/D
     Route: 048
     Dates: start: 20131017
  13. TRIATEC [Concomitant]
     Route: 048
     Dates: start: 20131017
  14. FORLAX [Concomitant]
     Dates: start: 20131114

REACTIONS (1)
  - Cardiomyopathy [Not Recovered/Not Resolved]
